FAERS Safety Report 6922621-4 (Version None)
Quarter: 2010Q3

REPORT INFORMATION
  Report Type: 
  Country: None (occurrence: None)
  Receive Date: 20100813
  Receipt Date: 20100804
  Transmission Date: 20110219
  Serious: Yes (Hospitalization)
  Sender: FDA-Public Use
  Company Number: US-JNJFOC-20100802105

PATIENT
  Sex: Female
  Weight: 41.2 kg

DRUGS (7)
  1. INFLIXIMAB [Suspect]
     Indication: INFLAMMATION
     Route: 042
  2. INFLIXIMAB [Suspect]
     Route: 042
  3. PREDNISONE [Concomitant]
  4. 5-ASA [Concomitant]
  5. CYCLOSPORINE [Concomitant]
  6. VANCOMYCIN [Concomitant]
  7. BACTRIM [Concomitant]

REACTIONS (1)
  - CROHN'S DISEASE [None]
